FAERS Safety Report 5733610-X (Version None)
Quarter: 2008Q2

REPORT INFORMATION
  Report Type: 
  Country: None (occurrence: None)
  Receive Date: 20080509
  Receipt Date: 20080428
  Transmission Date: 20081010
  Serious: Yes (Other)
  Sender: FDA-Public Use
  Company Number: FR-PFIZER INC-2008037754

PATIENT
  Age: 50 Year
  Sex: Female

DRUGS (1)
  1. XALATAN [Suspect]

REACTIONS (3)
  - MACULAR HOLE [None]
  - METAMORPHOPSIA [None]
  - PAIN [None]
